FAERS Safety Report 10904118 (Version 2)
Quarter: 2015Q2

REPORT INFORMATION
  Report Type: Spontaneous
  Country: NL (occurrence: None)
  Receive Date: 20150306
  Receipt Date: 20150414
  Transmission Date: 20150821
  Serious: Yes (Other)
  Sender: FDA-Public Use
  Company Number: 2015NL001965

PATIENT
  Age: 86 Year
  Sex: Male

DRUGS (1)
  1. ELIGARD [Suspect]
     Active Substance: LEUPROLIDE ACETATE
     Indication: PROSTATE CANCER
     Dosage: 45 MG, ONCE EVERY SIX MONTHS, SUBCUTANEOUS
     Route: 058

REACTIONS (2)
  - Platelet count decreased [None]
  - Rectal haemorrhage [None]

NARRATIVE: CASE EVENT DATE: 201211
